FAERS Safety Report 9346518 (Version 4)
Quarter: 2013Q3

REPORT INFORMATION
  Report Type: Report from Study
  Country: CA (occurrence: CA)
  Receive Date: 20130613
  Receipt Date: 20130916
  Transmission Date: 20140515
  Serious: Yes (Hospitalization)
  Sender: FDA-Public Use
  Company Number: CA-JNJFOC-20130600839

PATIENT
  Age: 72 Year
  Sex: Female
  Weight: 59.9 kg

DRUGS (14)
  1. REMICADE [Suspect]
     Indication: CROHN^S DISEASE
     Dosage: 71ST INFUSION
     Route: 042
     Dates: start: 20130425
  2. REMICADE [Suspect]
     Indication: CROHN^S DISEASE
     Route: 042
     Dates: start: 20030715
  3. REMICADE [Suspect]
     Indication: CROHN^S DISEASE
     Dosage: 73RD INFUSION
     Route: 042
     Dates: start: 20130725
  4. COUMADIN [Concomitant]
     Route: 065
  5. DIAMICRON [Concomitant]
     Route: 065
  6. LASIX [Concomitant]
     Route: 065
  7. ACLASTA [Concomitant]
     Route: 065
  8. DIOVAN [Concomitant]
     Route: 065
  9. ACIDOPHILUS [Concomitant]
     Route: 065
  10. AMLODIPINE [Concomitant]
     Route: 065
  11. CALCIUM [Concomitant]
     Route: 065
  12. VITAMIN D [Concomitant]
     Route: 065
  13. PANCREATIC ENZYMES [Concomitant]
     Route: 065
  14. SIMVASTATIN [Concomitant]
     Route: 065

REACTIONS (1)
  - Coronary artery occlusion [Not Recovered/Not Resolved]
